FAERS Safety Report 20910397 (Version 1)
Quarter: 2022Q2

REPORT INFORMATION
  Report Type: Spontaneous
  Country: US (occurrence: None)
  Receive Date: 20220602
  Receipt Date: 20220602
  Transmission Date: 20220720
  Serious: No
  Sender: FDA-Public Use
  Company Number: None

PATIENT
  Sex: Female

DRUGS (1)
  1. ICATIBANT ACETATE [Suspect]
     Active Substance: ICATIBANT ACETATE
     Indication: Complement factor abnormal
     Dosage: FREQUENCY : AS NEEDED;?
     Route: 058
     Dates: start: 20210430

REACTIONS (3)
  - Weight increased [None]
  - Musculoskeletal discomfort [None]
  - Exposure during pregnancy [None]

NARRATIVE: CASE EVENT DATE: 20220525
